FAERS Safety Report 9775913 (Version 2)
Quarter: 2014Q2

REPORT INFORMATION
  Report Type: Report from Study
  Country: FR (occurrence: FR)
  Receive Date: 20131220
  Receipt Date: 20140523
  Transmission Date: 20141212
  Serious: Yes (Hospitalization, Other)
  Sender: FDA-Public Use
  Company Number: FR-VIIV HEALTHCARE LIMITED-B0954874A

PATIENT
  Age: 42 Year
  Sex: Male
  Weight: 63 kg

DRUGS (8)
  1. BLINDED TRIAL MEDICATION-VIIV [Suspect]
     Indication: HIV INFECTION
     Dates: start: 20131119, end: 20131217
  2. ISENTRESS [Suspect]
     Indication: HIV INFECTION
     Dosage: 400MG TWICE PER DAY
     Dates: start: 20131119, end: 20131217
  3. TRUVADA [Suspect]
     Indication: HIV INFECTION
     Dosage: 300MG PER DAY
     Dates: start: 20131119, end: 20131217
  4. DEXAMBUTOL [Suspect]
     Indication: MYCOBACTERIAL INFECTION
     Dosage: 1500UNIT PER DAY
     Dates: start: 20131112
  5. ZECLAR [Suspect]
     Indication: MYCOBACTERIAL INFECTION
     Dosage: 1000MG PER DAY
     Dates: start: 20131112
  6. WELLVONE [Suspect]
     Indication: PROPHYLAXIS
     Dosage: 750UNIT TWICE PER DAY
     Dates: start: 20131107
  7. VALGANCICLOVIR HYDROCHLORIDE [Suspect]
     Indication: CYTOMEGALOVIRUS INFECTION
     Dosage: 900UNIT PER DAY
     Dates: start: 20131112
  8. INEXIUM [Suspect]
     Indication: GASTRITIS
     Dosage: 40MG PER DAY
     Dates: start: 20131112

REACTIONS (1)
  - Gastritis [Recovering/Resolving]
